FAERS Safety Report 24894724 (Version 1)
Quarter: 2025Q1

REPORT INFORMATION
  Report Type: Spontaneous
  Country: US (occurrence: None)
  Receive Date: 20250127
  Receipt Date: 20250127
  Transmission Date: 20250408
  Serious: Yes (Hospitalization)
  Sender: FDA-CTU
  Company Number: None

PATIENT
  Age: 39 Year
  Sex: Female
  Weight: 63 kg

DRUGS (15)
  1. SUNOSI [Suspect]
     Active Substance: SOLRIAMFETOL
     Indication: Narcolepsy
     Route: 048
     Dates: start: 20190701, end: 20250124
  2. SINGULAIR [Concomitant]
     Active Substance: MONTELUKAST SODIUM
  3. ALBUTEROL [Concomitant]
     Active Substance: ALBUTEROL
  4. AMBIEN [Concomitant]
     Active Substance: ZOLPIDEM TARTRATE
  5. LAMICTAL [Concomitant]
     Active Substance: LAMOTRIGINE
  6. IMDUR [Concomitant]
     Active Substance: ISOSORBIDE MONONITRATE
  7. ASPIRIN [Concomitant]
     Active Substance: ASPIRIN
  8. PLAVIX [Concomitant]
     Active Substance: CLOPIDOGREL BISULFATE
  9. LIPITOR [Concomitant]
     Active Substance: ATORVASTATIN CALCIUM
  10. progesterin birth control [Concomitant]
  11. alarax [Concomitant]
  12. COREG [Concomitant]
     Active Substance: CARVEDILOL
  13. ZETIA [Concomitant]
     Active Substance: EZETIMIBE
  14. FLONASE [Concomitant]
     Active Substance: FLUTICASONE PROPIONATE
  15. ALLEGRA [Concomitant]
     Active Substance: FEXOFENADINE HYDROCHLORIDE

REACTIONS (1)
  - Acute myocardial infarction [None]

NARRATIVE: CASE EVENT DATE: 20250115
